FAERS Safety Report 17090589 (Version 1)
Quarter: 2019Q4

REPORT INFORMATION
  Report Type: Spontaneous
  Country: US (occurrence: US)
  Receive Date: 20191031
  Receipt Date: 20191031
  Transmission Date: 20200122
  Serious: No
  Sender: FDA-Public Use
  Company Number: None

PATIENT
  Sex: Female

DRUGS (1)
  1. PROLIA [Suspect]
     Active Substance: DENOSUMAB
     Dosage: ?          OTHER FREQUENCY:EVERY6MONTHS ;?
     Route: 058
     Dates: start: 20190416

REACTIONS (1)
  - Incontinence [None]
